FAERS Safety Report 9928499 (Version 1)
Quarter: 2014Q1

REPORT INFORMATION
  Report Type: Spontaneous
  Country: US (occurrence: None)
  Receive Date: 20140226
  Receipt Date: 20140226
  Transmission Date: 20141002
  Serious: Yes (Hospitalization)
  Sender: FDA-Public Use
  Company Number: None

PATIENT
  Age: 65 Year
  Sex: Male
  Weight: 108.6 kg

DRUGS (3)
  1. CLOPIDOGREL [Suspect]
     Indication: CARDIAC OPERATION
     Route: 048
     Dates: start: 20041021, end: 20140213
  2. CLOPIDOGREL [Suspect]
     Indication: CORONARY ARTERIAL STENT INSERTION
     Route: 048
     Dates: start: 20041021, end: 20140213
  3. ASPIRIN [Suspect]
     Indication: DIABETES MELLITUS
     Route: 048
     Dates: start: 20090501

REACTIONS (2)
  - Gastrointestinal haemorrhage [None]
  - Haemorrhagic anaemia [None]
